FAERS Safety Report 21558848 (Version 1)
Quarter: 2022Q4

REPORT INFORMATION
  Report Type: Spontaneous
  Country: US (occurrence: US)
  Receive Date: 20221107
  Receipt Date: 20221107
  Transmission Date: 20230113
  Serious: No
  Sender: FDA-Public Use
  Company Number: US-009507513-2210USA004049

PATIENT
  Age: 71 Year
  Sex: Male

DRUGS (1)
  1. PRIMAXIN IV [Suspect]
     Active Substance: CILASTATIN SODIUM\IMIPENEM
     Indication: Burkholderia pseudomallei infection
     Dosage: UNK

REACTIONS (1)
  - Product use in unapproved indication [Unknown]
